FAERS Safety Report 7746107-2 (Version None)
Quarter: 2011Q3

REPORT INFORMATION
  Report Type: 
  Country: None (occurrence: None)
  Receive Date: 20110907
  Receipt Date: 20110824
  Transmission Date: 20111222
  Serious: Yes (Hospitalization)
  Sender: FDA-Public Use
  Company Number: 200811IM000324

PATIENT
  Age: 34 Year
  Sex: Male

DRUGS (8)
  1. COLISTIN SULFATE [Suspect]
     Dosage: INTRAVENOUS
     Route: 042
  2. MEROPENEM [Suspect]
     Dosage: INTRAVENOUS
     Route: 042
  3. CLARITHROMYCIN [Suspect]
     Indication: MYCOBACTERIUM ABSCESSUS INFECTION
  4. TOBRAMYCIN [Suspect]
     Indication: MYCOBACTERIUM ABSCESSUS INFECTION
  5. OMEPRAZOLE [Suspect]
     Indication: GASTROOESOPHAGEAL REFLUX DISEASE
  6. INTERFERON GAMMA NOS [Suspect]
     Indication: MYCOBACTERIUM ABSCESSUS INFECTION
     Dosage: SUBCUTANEOUS
     Route: 058
  7. MINOCYCLINE HCL [Suspect]
     Indication: MYCOBACTERIUM ABSCESSUS INFECTION
  8. CIPROFLOXACIN [Suspect]

REACTIONS (5)
  - DEHYDRATION [None]
  - HYPOTENSION [None]
  - TACHYCARDIA [None]
  - PSEUDOMEMBRANOUS COLITIS [None]
  - ABDOMINAL DISTENSION [None]
